FAERS Safety Report 5436291-8 (Version None)
Quarter: 2007Q3

REPORT INFORMATION
  Report Type: 
  Country: None (occurrence: None)
  Receive Date: 20070831
  Receipt Date: 20070828
  Transmission Date: 20080115
  Serious: Yes (Death, Hospitalization)
  Sender: FDA-Public Use
  Company Number: FR-BRISTOL-MYERS SQUIBB COMPANY-13893417

PATIENT
  Age: 66 Year
  Sex: Male

DRUGS (10)
  1. APROVEL TABS 150 MG [Suspect]
     Route: 048
     Dates: start: 20070612, end: 20070628
  2. LASIX [Suspect]
  3. COLCHICINE [Suspect]
     Indication: HELICOBACTER INFECTION
     Dates: start: 20070612
  4. ZECLAR [Suspect]
     Indication: HELICOBACTER INFECTION
     Dates: start: 20070612
  5. HYPERIUM [Concomitant]
  6. ATENOLOL [Concomitant]
  7. KARDEGIC [Concomitant]
  8. DEDROGYL [Concomitant]
  9. NOVORAPID [Concomitant]
  10. UN-ALFA [Concomitant]

REACTIONS (19)
  - ACUTE RESPIRATORY DISTRESS SYNDROME [None]
  - BLOOD CREATINE PHOSPHOKINASE INCREASED [None]
  - BONE MARROW FAILURE [None]
  - CARDIOVASCULAR DISORDER [None]
  - CYTOLYTIC HEPATITIS [None]
  - DISSEMINATED INTRAVASCULAR COAGULATION [None]
  - HAEMODIALYSIS [None]
  - HAEMODYNAMIC INSTABILITY [None]
  - HEPATITIS [None]
  - LACTIC ACIDOSIS [None]
  - METABOLIC ACIDOSIS [None]
  - MOTOR DYSFUNCTION [None]
  - MULTI-ORGAN FAILURE [None]
  - MYOSITIS [None]
  - NEUROMYOPATHY [None]
  - PANCYTOPENIA [None]
  - RENAL FAILURE ACUTE [None]
  - SEPTIC SHOCK [None]
  - SUPERINFECTION [None]
